FAERS Safety Report 15907275 (Version 3)
Quarter: 2019Q1

REPORT INFORMATION
  Report Type: Spontaneous
  Country: PL (occurrence: PL)
  Receive Date: 20190204
  Receipt Date: 20190312
  Transmission Date: 20190417
  Serious: Yes (Other)
  Sender: FDA-Public Use
  Company Number: PL-UCBSA-2019004453

PATIENT
  Sex: Female
  Weight: 3.7 kg

DRUGS (9)
  1. PHENOBARBITAL. [Suspect]
     Active Substance: PHENOBARBITAL
     Indication: SEIZURE
     Dosage: UNKNOWN DOSE
  2. CARBAMAZEPINE. [Suspect]
     Active Substance: CARBAMAZEPINE
     Indication: SEIZURE
     Dosage: UNKNOWN DOSE
  3. LEVETIRACETAM. [Suspect]
     Active Substance: LEVETIRACETAM
     Indication: SEIZURE
     Dosage: UNKNOWN DOSE
  4. CLOBAZAM. [Suspect]
     Active Substance: CLOBAZAM
     Indication: SEIZURE
     Dosage: UNKNOWN DOSE
  5. TOPIRAMATE. [Suspect]
     Active Substance: TOPIRAMATE
     Indication: SEIZURE
     Dosage: UNKNOWN DOSE
  6. PYRIDOXINE [Suspect]
     Active Substance: PYRIDOXINE
     Indication: SEIZURE
     Dosage: UNKNOWN DOSE
  7. PHENYTOIN. [Suspect]
     Active Substance: PHENYTOIN
     Indication: SEIZURE
     Dosage: UNKNOWN DOSE
  8. CLONAZEPAM. [Suspect]
     Active Substance: CLONAZEPAM
     Indication: SEIZURE
     Dosage: UNKNOWN DOSE
  9. TETRACOSACTIDE [Suspect]
     Active Substance: COSYNTROPIN
     Indication: SEIZURE
     Dosage: UNKNOWN DOSE

REACTIONS (1)
  - Multiple-drug resistance [Not Recovered/Not Resolved]
